FAERS Safety Report 22002711 (Version 2)
Quarter: 2023Q1

REPORT INFORMATION
  Report Type: Report from Study
  Country: CA (occurrence: CA)
  Receive Date: 20230217
  Receipt Date: 20230314
  Transmission Date: 20230417
  Serious: Yes (Other)
  Sender: FDA-Public Use
  Company Number: CA-JNJFOC-20221014716

PATIENT
  Age: 66 Year
  Sex: Male

DRUGS (1)
  1. ZYTIGA [Suspect]
     Active Substance: ABIRATERONE ACETATE
     Indication: Prostate cancer
     Route: 048

REACTIONS (10)
  - Tracheal cancer [Not Recovered/Not Resolved]
  - Neoplasm progression [Not Recovered/Not Resolved]
  - Metastases to lymph nodes [Unknown]
  - Drug ineffective [Unknown]
  - White blood cell count decreased [Unknown]
  - Sciatica [Unknown]
  - Ligament sprain [Unknown]
  - Influenza [Unknown]
  - Arthropathy [Unknown]
  - Nasopharyngitis [Not Recovered/Not Resolved]

NARRATIVE: CASE EVENT DATE: 20220801
